FAERS Safety Report 16994226 (Version 1)
Quarter: 2019Q4

REPORT INFORMATION
  Report Type: Spontaneous
  Country: US (occurrence: US)
  Receive Date: 20191105
  Receipt Date: 20191105
  Transmission Date: 20200122
  Serious: No
  Sender: FDA-Public Use
  Company Number: US-SCIEGEN PHARMACEUTICALS INC-2019SCISPO00327

PATIENT

DRUGS (3)
  1. GABAPENTIN CAPSULES [Suspect]
     Active Substance: GABAPENTIN
  2. LAXATIVE [Interacting]
     Active Substance: UNSPECIFIED INGREDIENT
  3. STOOL SOFTENER (DOCUSATE) [Interacting]
     Active Substance: DOCUSATE

REACTIONS (8)
  - Oedema peripheral [Unknown]
  - Memory impairment [Unknown]
  - Disturbance in attention [Unknown]
  - Anxiety [Unknown]
  - Disorientation [Unknown]
  - Product substitution issue [Unknown]
  - Constipation [Unknown]
  - Somnolence [Unknown]
